FAERS Safety Report 25958265 (Version 1)
Quarter: 2025Q4

REPORT INFORMATION
  Report Type: Spontaneous
  Country: US (occurrence: US)
  Receive Date: 20251024
  Receipt Date: 20251024
  Transmission Date: 20260118
  Serious: No
  Sender: BRISTOL-MYERS SQUIBB COMPANY
  Company Number: US-BRISTOL-MYERS SQUIBB COMPANY-2025-144804

PATIENT
  Age: 45 Year
  Sex: Male
  Weight: 33.25 kg

DRUGS (1)
  1. REVLIMID [Suspect]
     Active Substance: LENALIDOMIDE
     Indication: Thrombotic microangiopathy

REACTIONS (3)
  - Inappropriate schedule of product administration [Recovering/Resolving]
  - Product prescribing issue [Recovering/Resolving]
  - Off label use [Unknown]
